FAERS Safety Report 9446805 (Version 1)
Quarter: 2013Q3

REPORT INFORMATION
  Report Type: Spontaneous
  Country: US (occurrence: US)
  Receive Date: 20130807
  Receipt Date: 20130807
  Transmission Date: 20140515
  Serious: No
  Sender: FDA-Public Use
  Company Number: US-AMGEN-USASP2013051732

PATIENT
  Age: 56 Year
  Sex: Female

DRUGS (15)
  1. ENBREL [Suspect]
     Indication: RHEUMATOID ARTHRITIS
     Dosage: UNK
     Route: 065
     Dates: start: 2013
  2. HUMIRA [Concomitant]
     Indication: RHEUMATOID ARTHRITIS
     Dosage: 40 MG, UNK (1 IN 2 WEEKS)
     Route: 065
  3. METHOTREXATE [Concomitant]
     Dosage: UNK
  4. PREDNISONE [Concomitant]
     Dosage: UNK
  5. PLAQUENIL                          /00072602/ [Concomitant]
     Dosage: UNK
  6. LEVOTHYROXINE [Concomitant]
     Dosage: UNK
  7. CALCIUM + VIT D [Concomitant]
     Dosage: UNK
  8. FLEXERIL                           /00428402/ [Concomitant]
     Dosage: UNK
  9. GAVISCON                           /00237601/ [Concomitant]
     Dosage: UNK
  10. FOLIC ACID [Concomitant]
     Dosage: UNK
  11. MOTRIN [Concomitant]
     Dosage: UNK
  12. BONIVA [Concomitant]
     Dosage: UNK
  13. PRAVASTATIN [Concomitant]
     Dosage: UNK
  14. METFORMIN [Concomitant]
     Dosage: UNK
  15. VICODIN [Concomitant]
     Dosage: UNK

REACTIONS (4)
  - Muscle spasms [Unknown]
  - Joint lock [Unknown]
  - Arthralgia [Unknown]
  - Musculoskeletal pain [Unknown]
